FAERS Safety Report 10159815 (Version 1)
Quarter: 2014Q2

REPORT INFORMATION
  Report Type: Spontaneous
  Country: US (occurrence: US)
  Receive Date: 20140508
  Receipt Date: 20140508
  Transmission Date: 20141212
  Serious: No
  Sender: FDA-Public Use
  Company Number: US-GLAXOSMITHKLINE-A1032894A

PATIENT
  Age: 57 Year
  Sex: Female
  Weight: 63.6 kg

DRUGS (6)
  1. TYKERB [Suspect]
     Indication: METASTASES TO CENTRAL NERVOUS SYSTEM
     Dosage: 750MG PER DAY
     Route: 048
     Dates: start: 20130627, end: 20130722
  2. XELODA [Suspect]
     Indication: METASTASES TO CENTRAL NERVOUS SYSTEM
     Dosage: 1000MG SEE DOSAGE TEXT
     Route: 048
     Dates: start: 20130627
  3. MULTIVITAMIN [Concomitant]
  4. CALCIUM D [Concomitant]
  5. EFFEXOR XR [Concomitant]
  6. PEPCID [Concomitant]

REACTIONS (6)
  - Diarrhoea [Recovered/Resolved]
  - Muscle spasms [Recovered/Resolved]
  - Pain in extremity [Recovered/Resolved]
  - Peripheral swelling [Recovered/Resolved]
  - Musculoskeletal stiffness [Recovered/Resolved]
  - Fatigue [Recovered/Resolved]
